FAERS Safety Report 8228640-2 (Version None)
Quarter: 2012Q1

REPORT INFORMATION
  Report Type: 
  Country: None (occurrence: None)
  Receive Date: 20120322
  Receipt Date: 20110217
  Transmission Date: 20120608
  Serious: No
  Sender: FDA-Public Use
  Company Number: US-BRISTOL-MYERS SQUIBB COMPANY-15556061

PATIENT
  Age: 69 Year
  Sex: Male
  Weight: 79 kg

DRUGS (6)
  1. PLAVIX [Concomitant]
  2. ERBITUX [Suspect]
     Dosage: EVERY MONDAY FOR ABOUT 4 MONTHS.
  3. TOPROL-XL [Concomitant]
  4. ACETYLSALICYLIC ACID SRT [Concomitant]
  5. NIASPAN [Concomitant]
  6. ZOCOR [Concomitant]

REACTIONS (3)
  - RASH [None]
  - ASTHENIA [None]
  - DIARRHOEA [None]
